FAERS Safety Report 21650781 (Version 1)
Quarter: 2022Q4

REPORT INFORMATION
  Report Type: Spontaneous
  Country: US (occurrence: US)
  Receive Date: 20221128
  Receipt Date: 20221128
  Transmission Date: 20230112
  Serious: No
  Sender: FDA-Public Use
  Company Number: US-ELI_LILLY_AND_COMPANY-US202211008696

PATIENT
  Sex: Female

DRUGS (1)
  1. TRULICITY [Suspect]
     Active Substance: DULAGLUTIDE
     Indication: Type 2 diabetes mellitus
     Dosage: UNK UNK, WEEKLY (1/W)
     Route: 065

REACTIONS (4)
  - Feeling abnormal [Unknown]
  - Anxiety [Unknown]
  - Nervousness [Unknown]
  - Drug ineffective [Unknown]
